FAERS Safety Report 6853831-2 (Version None)
Quarter: 2010Q3

REPORT INFORMATION
  Report Type: 
  Country: None (occurrence: None)
  Receive Date: 20100717
  Receipt Date: 20071217
  Transmission Date: 20110219
  Serious: No
  Sender: FDA-Public Use
  Company Number: US-PFIZER INC-2007107405

PATIENT
  Sex: Male
  Weight: 60.909 kg

DRUGS (1)
  1. CHANTIX [Suspect]
     Indication: SMOKING CESSATION THERAPY
     Dates: end: 20071217

REACTIONS (3)
  - CRYING [None]
  - IRRITABILITY [None]
  - SOMNOLENCE [None]
